FAERS Safety Report 8150938-7 (Version None)
Quarter: 2012Q1

REPORT INFORMATION
  Report Type: 
  Country: None (occurrence: None)
  Receive Date: 20120220
  Receipt Date: 20120208
  Transmission Date: 20120608
  Serious: Yes (Other)
  Sender: FDA-Public Use
  Company Number: JP-GILEAD-2012-0051086

PATIENT
  Sex: Female

DRUGS (13)
  1. LIVACT                             /00847901/ [Concomitant]
     Dosage: 1IUAX PER DAY
     Route: 048
  2. RABEPRAZOLE SODIUM [Concomitant]
     Indication: PROPHYLAXIS
     Dosage: 10MG PER DAY
     Route: 048
  3. INCREMIN WITH IRON [Concomitant]
     Indication: IRON DEFICIENCY ANAEMIA
     Dosage: 15ML PER DAY
     Route: 048
  4. REVATIO [Concomitant]
     Indication: PULMONARY ARTERIAL HYPERTENSION
     Dosage: 60MG PER DAY
     Route: 048
  5. PROMAC                             /00024401/ [Concomitant]
     Dosage: 150MG PER DAY
     Route: 048
  6. FUROSEMIDE [Concomitant]
     Indication: OEDEMA
     Dosage: 10MG PER DAY
     Route: 048
  7. ALLEGRA [Concomitant]
     Indication: RHINITIS ALLERGIC
     Dosage: 120MG PER DAY
     Route: 048
  8. PURSENNIDE                         /00571902/ [Concomitant]
     Indication: CONSTIPATION
     Dosage: 36MG PER DAY
     Route: 048
  9. SPIRONOLACTONE [Concomitant]
     Indication: OEDEMA
     Dosage: 50MG PER DAY
     Route: 048
  10. AMBRISENTAN [Suspect]
     Indication: PULMONARY ARTERIAL HYPERTENSION
     Dosage: 2.5MG PER DAY
     Route: 048
     Dates: start: 20120206, end: 20120207
  11. WARFARIN SODIUM [Concomitant]
     Indication: PORTAL VEIN THROMBOSIS
     Dosage: 1MG PER DAY
     Route: 048
  12. URSODIOL [Concomitant]
     Dosage: 600MG PER DAY
     Route: 048
  13. CINAL [Concomitant]
     Dosage: 3IUAX PER DAY
     Route: 048

REACTIONS (3)
  - HYPERAMMONAEMIA [None]
  - HEPATIC ENCEPHALOPATHY [None]
  - ALTERED STATE OF CONSCIOUSNESS [None]
